FAERS Safety Report 4524220-0 (Version None)
Quarter: 2004Q4

REPORT INFORMATION
  Report Type: 
  Country: None (occurrence: None)
  Receive Date: 20041210
  Receipt Date: 20041201
  Transmission Date: 20050328
  Serious: Yes (Hospitalization)
  Sender: FDA-Public Use
  Company Number: FR-ABBOTT-04P-056-0281993-00

PATIENT
  Sex: Female

DRUGS (8)
  1. DEPAKOTE [Suspect]
     Indication: AFFECTIVE DISORDER
     Route: 048
     Dates: start: 20040905
  2. PAROXETINE HYDROCHLORIDE [Suspect]
     Indication: AFFECTIVE DISORDER
     Route: 048
     Dates: start: 20040901, end: 20041001
  3. FERROUS SULFATE TAB [Concomitant]
     Indication: DRUG USE FOR UNKNOWN INDICATION
     Route: 048
  4. VITAMIN B COMPLEX CAP [Concomitant]
     Indication: DRUG USE FOR UNKNOWN INDICATION
  5. LEVOTHYROXINE SODIUM [Concomitant]
     Indication: HYPOTHYROIDISM
     Route: 048
     Dates: start: 19940101
  6. AKRINOR [Concomitant]
     Indication: DRUG USE FOR UNKNOWN INDICATION
     Route: 048
  7. OXAZEPAM [Concomitant]
     Indication: ANXIETY
     Route: 048
  8. ZOPICLONE [Concomitant]
     Indication: SEDATIVE THERAPY
     Route: 048

REACTIONS (4)
  - CONDITION AGGRAVATED [None]
  - EXTRAPYRAMIDAL DISORDER [None]
  - HYPONATRAEMIA [None]
  - TREMOR [None]
